FAERS Safety Report 11020207 (Version 1)
Quarter: 2015Q2

REPORT INFORMATION
  Report Type: Spontaneous
  Country: JP (occurrence: JP)
  Receive Date: 20150413
  Receipt Date: 20150413
  Transmission Date: 20150821
  Serious: Yes (Hospitalization)
  Sender: FDA-Public Use
  Company Number: JP-ROCHE-1562548

PATIENT
  Age: 6 Year
  Sex: Female
  Weight: 19 kg

DRUGS (3)
  1. ROCEPHIN [Suspect]
     Active Substance: CEFTRIAXONE SODIUM
     Indication: PYREXIA
     Dosage: FOUR TIMES
     Route: 041
     Dates: start: 20140702, end: 20140704
  2. OZEX (JAPAN) [Suspect]
     Active Substance: TOSUFLOXACIN TOSYLATE
     Indication: PYREXIA
     Route: 048
     Dates: start: 20140701, end: 20140702
  3. FAROM [Suspect]
     Active Substance: FAROPENEM SODIUM
     Indication: PYREXIA
     Route: 048
     Dates: start: 20140625, end: 20140630

REACTIONS (1)
  - Renal impairment [Recovered/Resolved]

NARRATIVE: CASE EVENT DATE: 20140704
